FAERS Safety Report 5109317-9 (Version None)
Quarter: 2006Q3

REPORT INFORMATION
  Report Type: 
  Country: None (occurrence: None)
  Receive Date: 20060920
  Receipt Date: 20060619
  Transmission Date: 20061208
  Serious: Yes (Hospitalization)
  Sender: FDA-Public Use
  Company Number: SE-GLAXOSMITHKLINE-B0428518A

PATIENT
  Age: 77 Year
  Sex: Female

DRUGS (7)
  1. VENTOLIN [Suspect]
     Route: 055
  2. SELOKEN [Suspect]
     Indication: HYPERTONIA
     Route: 048
     Dates: start: 20060301
  3. SIMVASTATIN [Suspect]
     Indication: HYPERTONIA
     Route: 048
     Dates: start: 20060301
  4. SPIRIVA [Concomitant]
     Route: 055
  5. GLYTRIN [Concomitant]
  6. TROMBYL [Concomitant]
  7. SERETIDE [Concomitant]
     Route: 055

REACTIONS (3)
  - ATRIAL FIBRILLATION [None]
  - HYPOTENSION [None]
  - TRANSAMINASES INCREASED [None]
